FAERS Safety Report 11220201 (Version 1)
Quarter: 2015Q2

REPORT INFORMATION
  Report Type: Report from Study
  Country: US (occurrence: US)
  Receive Date: 20150625
  Receipt Date: 20150625
  Transmission Date: 20150821
  Serious: No
  Sender: FDA-Public Use
  Company Number: US-EXELIXIS-CABO-15005349

PATIENT
  Age: 65 Year
  Sex: Female

DRUGS (9)
  1. CABOZANTINIB [Suspect]
     Active Substance: CABOZANTINIB
     Indication: THYROID CANCER
     Dosage: 140 MG, QD
     Route: 048
     Dates: start: 20150322, end: 20150413
  2. LEVOTHYROXINE [Concomitant]
     Active Substance: LEVOTHYROXINE
  3. ATENOLOL. [Concomitant]
     Active Substance: ATENOLOL
  4. FISH OIL [Concomitant]
     Active Substance: FISH OIL
  5. CABOZANTINIB [Suspect]
     Active Substance: CABOZANTINIB
     Dosage: 140 MG, QD
     Route: 048
     Dates: start: 20150414
  6. TYLENOL [Concomitant]
     Active Substance: ACETAMINOPHEN
  7. VITAMIN C [Concomitant]
     Active Substance: ASCORBIC ACID
  8. LETROZOLE. [Concomitant]
     Active Substance: LETROZOLE
  9. VITAMIN D [Concomitant]
     Active Substance: CHOLECALCIFEROL

REACTIONS (9)
  - Hepatic enzyme increased [Unknown]
  - Chest pain [Unknown]
  - Stomatitis [Unknown]
  - Musculoskeletal pain [Recovered/Resolved]
  - Mucosal inflammation [Unknown]
  - Diarrhoea [Unknown]
  - Abdominal pain upper [Unknown]
  - Glossodynia [Unknown]
  - Fatigue [Unknown]

NARRATIVE: CASE EVENT DATE: 20150329
